FAERS Safety Report 6221829-3 (Version None)
Quarter: 2009Q2

REPORT INFORMATION
  Report Type: 
  Country: None (occurrence: None)
  Receive Date: 20090609
  Receipt Date: 20090529
  Transmission Date: 20091009
  Serious: Yes (Other)
  Sender: FDA-Public Use
  Company Number: US-WYE-H07828009

PATIENT
  Age: 63 Year
  Sex: Female

DRUGS (1)
  1. PREMARIN [Suspect]

REACTIONS (2)
  - BREAST CANCER METASTATIC [None]
  - METASTASES TO CHEST WALL [None]
